FAERS Safety Report 8787060 (Version 1)
Quarter: 2012Q4

REPORT INFORMATION
  Report Type: 
  Country: US (occurrence: US)
  Receive Date: 20120914
  Receipt Date: 20120914
  Transmission Date: 20130627
  Serious: No
  Sender: FDA-Public Use
  Company Number: US-VERTEX PHARMACEUTICAL INC.-AE-2012-010587

PATIENT

DRUGS (3)
  1. INCIVEK [Suspect]
     Indication: HEPATITIS C
     Route: 048
     Dates: start: 20111120, end: 2012
  2. PEGASYS [Concomitant]
     Indication: HEPATITIS C
     Dates: start: 20111120
  3. RIBAVIRIN [Concomitant]
     Indication: HEPATITIS C
     Dates: start: 20111120

REACTIONS (18)
  - Dyspnoea [Unknown]
  - Hepatic pain [Unknown]
  - Chromaturia [Unknown]
  - Influenza like illness [Unknown]
  - Pain [Unknown]
  - Personality change [Unknown]
  - Cachexia [Unknown]
  - Contusion [Unknown]
  - Alopecia [Unknown]
  - Dry skin [Unknown]
  - Fatigue [Unknown]
  - Skin exfoliation [Unknown]
  - Rash [Unknown]
  - Red blood cell count decreased [Unknown]
  - Haematocrit decreased [Unknown]
  - Anorectal discomfort [Unknown]
  - Diarrhoea [Recovered/Resolved]
  - Pruritus [Unknown]
